FAERS Safety Report 8999376 (Version 4)
Quarter: 2013Q1

REPORT INFORMATION
  Report Type: Spontaneous
  Country: US (occurrence: US)
  Receive Date: 20130103
  Receipt Date: 20130114
  Transmission Date: 20140127
  Serious: Yes (Death, Hospitalization)
  Sender: FDA-Public Use
  Company Number: US-009507513-1301USA000211

PATIENT
  Age: 62 Year
  Sex: Female

DRUGS (8)
  1. TEMODAR [Suspect]
     Indication: BRAIN NEOPLASM
     Dosage: 120 MGS/PRIOR TO RADIATION AND EVERY SAT. AND SUNDAY
     Route: 048
     Dates: start: 201212
  2. DEXAMETHASONE [Concomitant]
  3. DEXILANT [Concomitant]
  4. KEPPRA [Concomitant]
  5. ZOFRAN [Concomitant]
  6. SENOKOT (SENNA) [Concomitant]
  7. PERCOCET [Concomitant]
  8. ATIVAN [Concomitant]

REACTIONS (2)
  - Death [Fatal]
  - Pneumonia [Unknown]
